FAERS Safety Report 12989984 (Version 15)
Quarter: 2021Q2

REPORT INFORMATION
  Report Type: Spontaneous
  Country: US (occurrence: US)
  Receive Date: 20161201
  Receipt Date: 20210608
  Transmission Date: 20210716
  Serious: No
  Sender: FDA-Public Use
  Company Number: US-PFIZER INC-2016528616

PATIENT
  Age: 57 Year
  Sex: Female
  Weight: 78 kg

DRUGS (4)
  1. LYRICA [Suspect]
     Active Substance: PREGABALIN
     Indication: PAIN IN EXTREMITY
  2. LYRICA [Suspect]
     Active Substance: PREGABALIN
     Indication: NERVE INJURY
     Dosage: 450 MG, DAILY (1 CAPSULE IN THE MORNING AND 2 IN THE EVENING )
     Route: 048
  3. LYRICA [Suspect]
     Active Substance: PREGABALIN
     Indication: COMPLEX REGIONAL PAIN SYNDROME
     Dosage: 450 MG, DAILY (1 CAPSULE AM AND 2 CAPS AT BEDTIME)
     Dates: end: 20170509
  4. LYRICA [Suspect]
     Active Substance: PREGABALIN
     Indication: NEURALGIA

REACTIONS (8)
  - Headache [Unknown]
  - Asthenia [Unknown]
  - Intentional product use issue [Unknown]
  - Abdominal discomfort [Unknown]
  - Dysaesthesia [Unknown]
  - Procedural pain [Unknown]
  - Malaise [Unknown]
  - Product dispensing error [Unknown]

NARRATIVE: CASE EVENT DATE: 201705
